FAERS Safety Report 12677189 (Version 1)
Quarter: 2016Q3

REPORT INFORMATION
  Report Type: Spontaneous
  Country: US (occurrence: US)
  Receive Date: 20160823
  Receipt Date: 20160823
  Transmission Date: 20161109
  Serious: Yes (Hospitalization, Other)
  Sender: FDA-Public Use
  Company Number: US-PFIZER INC-2016381008

PATIENT
  Age: 27 Year
  Sex: Male

DRUGS (1)
  1. BENZOCAINE. [Suspect]
     Active Substance: BENZOCAINE
     Indication: DRUG ABUSE
     Dosage: UNK

REACTIONS (4)
  - Methaemoglobinaemia [Recovering/Resolving]
  - Overdose [Unknown]
  - Generalised tonic-clonic seizure [Unknown]
  - Suicide attempt [Unknown]
